FAERS Safety Report 13484117 (Version 1)
Quarter: 2017Q2

REPORT INFORMATION
  Report Type: Spontaneous
  Country: GB (occurrence: GB)
  Receive Date: 20170426
  Receipt Date: 20170426
  Transmission Date: 20170830
  Serious: Yes (Hospitalization)
  Sender: FDA-Public Use
  Company Number: GB-ACCORD-050627

PATIENT
  Age: 70 Year
  Sex: Male

DRUGS (22)
  1. TRIMETHOPRIM/TRIMETHOPRIM LACTATE/TRIMETHOPRIM SULFATE [Suspect]
     Active Substance: TRIMETHOPRIM
     Indication: PRODUCT USED FOR UNKNOWN INDICATION
     Route: 048
  2. BISACODYL. [Concomitant]
     Active Substance: BISACODYL
     Indication: CONSTIPATION
     Dosage: ONE DAILY
  3. ZOPICLONE [Concomitant]
     Active Substance: ZOPICLONE
     Dosage: AT NIGHT
  4. METHOTREXATE. [Suspect]
     Active Substance: METHOTREXATE
     Indication: PRODUCT USED FOR UNKNOWN INDICATION
     Route: 048
  5. ISMO [Concomitant]
     Active Substance: ISOSORBIDE MONONITRATE
     Dosage: MORNING
  6. LAXIDO [Concomitant]
     Active Substance: POLYETHYLENE GLYCOL 3350\POTASSIUM CHLORIDE\SODIUM BICARBONATE\SODIUM CHLORIDE
  7. FOSTAIR [Concomitant]
     Active Substance: BECLOMETHASONE\FORMOTEROL
     Route: 055
  8. DIGOXIN. [Concomitant]
     Active Substance: DIGOXIN
     Dosage: MORNING
  9. AMITRIPTYLINE [Concomitant]
     Active Substance: AMITRIPTYLINE
     Dosage: EVERY NIGHT
  10. OXYCODONE/OXYCODONE HYDROCHLORIDE/OXYCODONE PECTINATE/OXYCODONE TEREPHTHALATE [Concomitant]
     Dosage: 80+20
  11. BISOPROLOL [Concomitant]
     Active Substance: BISOPROLOL
     Dosage: MORNING
  12. DIAZEPAM. [Concomitant]
     Active Substance: DIAZEPAM
     Dosage: 2MG THREE TIMES A DAY AND ADDITIONAL 5MG AT NIGHT
  13. FELODIPINE. [Concomitant]
     Active Substance: FELODIPINE
     Dosage: MORNING
  14. FOLIC ACID. [Concomitant]
     Active Substance: FOLIC ACID
     Dosage: NOT ON DAY OF METHOTREXATE
  15. WARFARIN [Concomitant]
     Active Substance: WARFARIN
  16. SALBUTAMOL [Concomitant]
     Active Substance: ALBUTEROL
     Route: 055
  17. MIRTAZAPINE. [Concomitant]
     Active Substance: MIRTAZAPINE
     Dosage: AT NIGHT
  18. COCODAMOL [Concomitant]
     Active Substance: ACETAMINOPHEN\CODEINE PHOSPHATE
  19. TAMSULOSIN/TAMSULOSIN HYDROCHLORIDE [Concomitant]
     Dosage: MORNING
  20. PRAVASTATIN. [Concomitant]
     Active Substance: PRAVASTATIN
     Dosage: NIGHT
  21. FINASTERIDE. [Concomitant]
     Active Substance: FINASTERIDE
     Dosage: EVERY MORNING
  22. AZITHROMYCIN ANHYDROUS. [Concomitant]
     Active Substance: AZITHROMYCIN ANHYDROUS
     Dosage: MONDAY/WEDNESDAY/FRIDAY

REACTIONS (2)
  - Neutropenia [Unknown]
  - Contraindicated product administered [Unknown]
